FAERS Safety Report 24813750 (Version 1)
Quarter: 2025Q1

REPORT INFORMATION
  Report Type: Report from Study
  Country: US (occurrence: US)
  Receive Date: 20250107
  Receipt Date: 20250107
  Transmission Date: 20250408
  Serious: Yes (Other)
  Sender: ABBVIE
  Company Number: US-ABBVIE-6071384

PATIENT
  Sex: Female

DRUGS (1)
  1. HUMIRA [Suspect]
     Active Substance: ADALIMUMAB
     Indication: Rheumatoid arthritis
     Route: 058

REACTIONS (7)
  - Intervertebral disc degeneration [Unknown]
  - Sjogren^s syndrome [Unknown]
  - Osteoarthritis [Unknown]
  - Heart valve incompetence [Unknown]
  - Gait inability [Unknown]
  - Dysuria [Unknown]
  - Musculoskeletal stiffness [Unknown]
